FAERS Safety Report 5040576-7 (Version None)
Quarter: 2006Q2

REPORT INFORMATION
  Report Type: 
  Country: None (occurrence: None)
  Receive Date: 20060630
  Receipt Date: 20060622
  Transmission Date: 20061013
  Serious: Yes (Other)
  Sender: FDA-Public Use
  Company Number: US-ROCHE-453032

PATIENT
  Age: 23 Year
  Sex: Female

DRUGS (1)
  1. ACCUTANE [Suspect]
     Route: 048
     Dates: start: 19920708, end: 19921115

REACTIONS (2)
  - ABORTION SPONTANEOUS [None]
  - PREGNANCY [None]
